FAERS Safety Report 18254229 (Version 1)
Quarter: 2020Q3

REPORT INFORMATION
  Report Type: Spontaneous
  Country: US (occurrence: US)
  Receive Date: 20200910
  Receipt Date: 20200910
  Transmission Date: 20201103
  Serious: No
  Sender: FDA-Public Use
  Company Number: US-TEVA-2020-US-1825598

PATIENT
  Age: 92 Year
  Sex: Female
  Weight: 59.87 kg

DRUGS (4)
  1. PERFOROMIST [Concomitant]
     Active Substance: FORMOTEROL FUMARATE DIHYDRATE
     Dosage: TAKING IT IN A BREATHING MACHINE, 20 MCG 2 MG VIAL ONCE IN THE MORNING AND ONCE AT NIGHT
  2. OMEPRAZOLE. [Concomitant]
     Active Substance: OMEPRAZOLE
     Indication: DYSPEPSIA
  3. PROAIR HFA [Suspect]
     Active Substance: ALBUTEROL SULFATE
     Indication: ASTHMA
     Dosage: 2 PUFFS BY MOUTH EVERY 4 HOURS, 2 PUFFS FROM HER PROAIR HFA BEFORE GETTING UP FROM BED
     Route: 055
     Dates: start: 20200902
  4. SINGULAIR [Concomitant]
     Active Substance: MONTELUKAST SODIUM

REACTIONS (2)
  - Drug ineffective [Unknown]
  - Device delivery system issue [Unknown]

NARRATIVE: CASE EVENT DATE: 20200902
